FAERS Safety Report 5999460-4 (Version None)
Quarter: 2008Q4

REPORT INFORMATION
  Report Type: 
  Country: None (occurrence: None)
  Receive Date: 20081215
  Receipt Date: 20081205
  Transmission Date: 20090506
  Serious: Yes (Hospitalization)
  Sender: FDA-Public Use
  Company Number: KR-TEVA-168702ISR

PATIENT
  Sex: Male
  Weight: 64 kg

DRUGS (7)
  1. FLUOROURACIL [Suspect]
     Indication: COLORECTAL CANCER
     Route: 040
     Dates: start: 20080109
  2. FLUOROURACIL [Suspect]
     Route: 041
     Dates: start: 20080109
  3. FOLINIC ACID [Suspect]
     Indication: COLORECTAL CANCER
     Route: 042
     Dates: start: 20080109
  4. IRINOTECAN HYDROCHLORIDE [Suspect]
     Indication: COLORECTAL CANCER
     Route: 042
     Dates: start: 20080109
  5. ACETYLSALICYLIC ACID [Concomitant]
     Route: 048
     Dates: start: 20061201
  6. CLOPIDOGREL [Concomitant]
     Route: 048
     Dates: start: 20061201
  7. VALSARTAN [Concomitant]
     Route: 048
     Dates: start: 20061201

REACTIONS (1)
  - ACUTE MYOCARDIAL INFARCTION [None]
